FAERS Safety Report 13282255 (Version 2)
Quarter: 2017Q1

REPORT INFORMATION
  Report Type: Spontaneous
  Country: CO (occurrence: CO)
  Receive Date: 20170301
  Receipt Date: 20170331
  Transmission Date: 20170428
  Serious: Yes (Other)
  Sender: FDA-Public Use
  Company Number: PHHY2017CO029680

PATIENT
  Age: 3 Year
  Sex: Male

DRUGS (3)
  1. TRILEPTAL [Suspect]
     Active Substance: OXCARBAZEPINE
     Indication: SEIZURE
     Dosage: UNK
     Route: 048
     Dates: start: 20170224
  2. TEGRETOL [Suspect]
     Active Substance: CARBAMAZEPINE
     Indication: SEIZURE
     Dosage: UNK
     Route: 065
  3. RINOSAL [Concomitant]
     Indication: ADENOIDAL DISORDER
     Dosage: UNK UNK, BID (EVERY 12 HOURS)
     Route: 065

REACTIONS (3)
  - Erythema [Unknown]
  - Anticonvulsant drug level decreased [Unknown]
  - Febrile convulsion [Recovered/Resolved]
